FAERS Safety Report 9176603 (Version 1)
Quarter: 2013Q1

REPORT INFORMATION
  Report Type: Spontaneous
  Country: US (occurrence: None)
  Receive Date: 20130320
  Receipt Date: 20130320
  Transmission Date: 20140127
  Serious: Yes (Hospitalization)
  Sender: FDA-Public Use
  Company Number: None

PATIENT
  Sex: Female
  Weight: 77.3 kg

DRUGS (6)
  1. FLUDARABINE PHOSPHATE [Suspect]
     Dates: end: 20121228
  2. RITUXIMAB (MOAB C2B8 ANTI CD20, CHIMERIC) [Suspect]
     Dates: end: 20121224
  3. ACYCLOVIR [Concomitant]
  4. FLAX SEED OIL [Concomitant]
  5. PANTOPRAZOLE [Concomitant]
  6. VITAMIN E [Concomitant]

REACTIONS (1)
  - Febrile neutropenia [None]
